FAERS Safety Report 6206894-1 (Version None)
Quarter: 2009Q2

REPORT INFORMATION
  Report Type: 
  Country: None (occurrence: None)
  Receive Date: 20090528
  Receipt Date: 20090521
  Transmission Date: 20091009
  Serious: Yes (Other)
  Sender: FDA-Public Use
  Company Number: A0747264A

PATIENT
  Age: 45 Year
  Sex: Female

DRUGS (8)
  1. LAMICTAL [Suspect]
     Indication: BIPOLAR DISORDER
     Dosage: 200MG PER DAY
     Route: 048
     Dates: start: 20070601
  2. WELLBUTRIN [Suspect]
     Indication: DEPRESSION
     Route: 048
     Dates: start: 19900101
  3. SYNTHROID [Concomitant]
  4. CYTOMEL [Concomitant]
  5. FOSAMAX PLUS D [Concomitant]
  6. CALCIUM [Concomitant]
  7. MULTI-VITAMIN [Concomitant]
  8. FISH OIL [Concomitant]

REACTIONS (17)
  - ABDOMINAL DISTENSION [None]
  - ARTHRALGIA [None]
  - BACK PAIN [None]
  - CHANGE IN SUSTAINED ATTENTION [None]
  - DEMENTIA ALZHEIMER'S TYPE [None]
  - DRUG INEFFECTIVE [None]
  - FATIGUE [None]
  - FEAR [None]
  - FOOD CRAVING [None]
  - ILLUSION [None]
  - INTERVERTEBRAL DISC PROTRUSION [None]
  - IRRITABILITY [None]
  - MENTAL IMPAIRMENT [None]
  - OSTEOARTHRITIS [None]
  - PARANOIA [None]
  - POOR QUALITY SLEEP [None]
  - SUICIDAL IDEATION [None]
